FAERS Safety Report 7577468-5 (Version None)
Quarter: 2011Q2

REPORT INFORMATION
  Report Type: 
  Country: None (occurrence: None)
  Receive Date: 20110628
  Receipt Date: 20101217
  Transmission Date: 20111010
  Serious: Yes (Other)
  Sender: FDA-Public Use
  Company Number: US-BAYER-201012547NA

PATIENT
  Age: 55 Year
  Sex: Female
  Weight: 103.4 kg

DRUGS (32)
  1. OPTIMARK [Suspect]
     Indication: DIAGNOSTIC PROCEDURE
  2. NITROLINGUAL [Concomitant]
  3. ADVAIR DISKUS 100/50 [Concomitant]
  4. ALBUTEROL SULFATE AUTOHALER [Concomitant]
  5. UNSPECIFIED GADOLINIUM CONTRAST BASED AGENT [Suspect]
     Indication: NUCLEAR MAGNETIC RESONANCE IMAGING
  6. LYRICA [Concomitant]
  7. VITAMIN D [Concomitant]
  8. FOLIC ACID [Concomitant]
  9. FLOVENT [Concomitant]
  10. MULTIHANCE [Suspect]
     Indication: DIAGNOSTIC PROCEDURE
  11. PROHANCE [Suspect]
     Indication: DIAGNOSTIC PROCEDURE
  12. SYNTHROID [Concomitant]
  13. PREDNISONE [Concomitant]
     Indication: ASTHMA
     Dates: start: 20070101, end: 20070701
  14. ATROVENT [Concomitant]
  15. NORCO [Concomitant]
  16. FLEXERIL [Concomitant]
  17. IMDUR [Concomitant]
  18. CENTRUM [VIT C,VIT H,B5,B12,D2,FE+,B3,B6,RETINOL,B2,B1 HCL,VIT E] [Concomitant]
     Indication: ROUTINE HEALTH MAINTENANCE
     Dates: start: 20040101
  19. LASIX [Concomitant]
  20. ALLEGRA [Concomitant]
  21. PROVENTIL [Concomitant]
  22. FLOVENT [Concomitant]
  23. OXYGEN [Concomitant]
     Dosage: UNK UNK, HS
  24. VOLTAREN [Concomitant]
  25. SINGULAIR [Concomitant]
  26. COREG [Concomitant]
  27. CYANOCOBALAMIN [Concomitant]
  28. VITAMIN B1 TAB [Concomitant]
  29. SYMBICORT [Concomitant]
  30. NORVASC [Concomitant]
  31. FLONASE [Concomitant]
     Route: 045
  32. OMNISCAN [Suspect]
     Indication: DIAGNOSTIC PROCEDURE

REACTIONS (22)
  - MOTOR DYSFUNCTION [None]
  - MUSCLE TIGHTNESS [None]
  - GROIN PAIN [None]
  - BACK PAIN [None]
  - SKIN INDURATION [None]
  - SKIN TIGHTNESS [None]
  - SKIN FIBROSIS [None]
  - HYPOAESTHESIA [None]
  - ARTHRALGIA [None]
  - ACTIVITIES OF DAILY LIVING IMPAIRED [None]
  - SKIN HYPERTROPHY [None]
  - MUSCULOSKELETAL STIFFNESS [None]
  - SKIN DISCOLOURATION [None]
  - DEFORMITY [None]
  - NEPHROGENIC SYSTEMIC FIBROSIS [None]
  - PAIN [None]
  - JOINT RANGE OF MOTION DECREASED [None]
  - OEDEMA PERIPHERAL [None]
  - PARAESTHESIA [None]
  - ASTHENIA [None]
  - PRURITUS GENERALISED [None]
  - BURNING SENSATION [None]
